FAERS Safety Report 5116343-2 (Version None)
Quarter: 2006Q3

REPORT INFORMATION
  Report Type: 
  Country: None (occurrence: None)
  Receive Date: 20060927
  Receipt Date: 20060505
  Transmission Date: 20061208
  Serious: Yes (Death, Hospitalization, Other)
  Sender: FDA-Public Use
  Company Number: US-ABBOTT-06P-163-0332442-00

PATIENT
  Sex: Female
  Weight: 71.732 kg

DRUGS (8)
  1. SYNTHROID [Suspect]
     Indication: HYPOTHYROIDISM
     Route: 048
     Dates: start: 20060305, end: 20060426
  2. SYNTHROID [Suspect]
  3. SYNTHROID [Suspect]
  4. LEXAPRO [Concomitant]
     Indication: DEPRESSION
  5. GABAPENTIN [Concomitant]
     Indication: NEURALGIA
  6. SERETIDE MITE [Concomitant]
     Indication: CHRONIC OBSTRUCTIVE PULMONARY DISEASE
  7. TIZANIDINE HCL [Concomitant]
     Indication: BACK PAIN
  8. SINGULAIR [Concomitant]
     Indication: CHRONIC OBSTRUCTIVE PULMONARY DISEASE

REACTIONS (5)
  - CEREBROVASCULAR ACCIDENT [None]
  - METASTATIC MALIGNANT MELANOMA [None]
  - PNEUMONIA [None]
  - RESPIRATORY FAILURE [None]
  - UPPER LIMB FRACTURE [None]
